FAERS Safety Report 6605202-1 (Version None)
Quarter: 2010Q1

REPORT INFORMATION
  Report Type: 
  Country: None (occurrence: None)
  Receive Date: 20100226
  Receipt Date: 20100216
  Transmission Date: 20100710
  Serious: Yes (Other)
  Sender: FDA-Public Use
  Company Number: AU-AMGEN-QUU388551

PATIENT
  Sex: Male
  Weight: 140 kg

DRUGS (3)
  1. ARANESP [Suspect]
     Indication: ANAEMIA
     Route: 058
     Dates: start: 20091022
  2. INSULIN MIXTARD [Concomitant]
  3. OMEPRAZOLE [Concomitant]

REACTIONS (4)
  - ANAEMIA [None]
  - ERYTHROPOIESIS ABNORMAL [None]
  - RETICULOCYTE COUNT DECREASED [None]
  - THERAPEUTIC RESPONSE DECREASED [None]
